FAERS Safety Report 5647982-8 (Version None)
Quarter: 2008Q1

REPORT INFORMATION
  Report Type: 
  Country: None (occurrence: None)
  Receive Date: 20080228
  Receipt Date: 20080215
  Transmission Date: 20080703
  Serious: Yes (Hospitalization)
  Sender: FDA-Public Use
  Company Number: 2008-01412

PATIENT
  Age: 39 Week
  Sex: Female
  Weight: 3 kg

DRUGS (3)
  1. FIORINAL W/CODEINE [Suspect]
     Indication: COUGH
     Dosage: 50 MG/DAY X 2WKS (TOTAL 700MG), TRANSPLACENTAL
     Route: 064
  2. PROMETHAZINE [Suspect]
     Indication: COUGH
     Dosage: 6.25 MG, DAILY X 2 WEEKS, TRANSPLACENTAL
     Route: 064
  3. UNSPECIFIED ANTIBIOTIC [Concomitant]

REACTIONS (3)
  - CEREBRAL INFARCTION [None]
  - DRUG EXPOSURE DURING PREGNANCY [None]
  - DRUG WITHDRAWAL SYNDROME NEONATAL [None]
